FAERS Safety Report 17005375 (Version 1)
Quarter: 2019Q4

REPORT INFORMATION
  Report Type: Spontaneous
  Country: US (occurrence: US)
  Receive Date: 20190925
  Receipt Date: 20190925
  Transmission Date: 20200122
  Serious: Yes (Other)
  Sender: FDA-Public Use
  Company Number: None

PATIENT
  Age: 81 Year
  Sex: Female
  Weight: 68.04 kg

DRUGS (3)
  1. PRALUENT [Suspect]
     Active Substance: ALIROCUMAB
     Indication: LOW DENSITY LIPOPROTEIN INCREASED
     Dosage: ?          QUANTITY:75 MG/ML - MILLLIGRAMS PER MILLILITRES;OTHER FREQUENCY:ONCE EVERY 2 WEEKS;?
     Route: 058
     Dates: start: 20190802, end: 20190802
  2. PRALUENT [Suspect]
     Active Substance: ALIROCUMAB
     Indication: MYOCARDIAL INFARCTION
     Dosage: ?          QUANTITY:75 MG/ML - MILLLIGRAMS PER MILLILITRES;OTHER FREQUENCY:ONCE EVERY 2 WEEKS;?
     Route: 058
     Dates: start: 20190802, end: 20190802
  3. PRALUENT [Suspect]
     Active Substance: ALIROCUMAB
     Indication: HIGH DENSITY LIPOPROTEIN NORMAL
     Dosage: ?          QUANTITY:75 MG/ML - MILLLIGRAMS PER MILLILITRES;OTHER FREQUENCY:ONCE EVERY 2 WEEKS;?
     Route: 058
     Dates: start: 20190802, end: 20190802

REACTIONS (14)
  - Asthenia [None]
  - Rash [None]
  - Anxiety [None]
  - Influenza [None]
  - Nasopharyngitis [None]
  - Hypersomnia [None]
  - Emotional disorder [None]
  - Arthralgia [None]
  - Eczema [None]
  - Eye infection [None]
  - Hot flush [None]
  - Feeling cold [None]
  - Fatigue [None]
  - Fine motor skill dysfunction [None]

NARRATIVE: CASE EVENT DATE: 20190802
